FAERS Safety Report 8289371-6 (Version None)
Quarter: 2012Q2

REPORT INFORMATION
  Report Type: 
  Country: None (occurrence: None)
  Receive Date: 20120417
  Receipt Date: 20120403
  Transmission Date: 20120825
  Serious: Yes (Life-Threatening, Other)
  Sender: FDA-Public Use
  Company Number: JP-RANBAXY-2012RR-55531

PATIENT
  Age: 39 Year
  Sex: Male

DRUGS (9)
  1. THIAMYLAL SODIUM [Interacting]
     Indication: INDUCTION OF ANAESTHESIA
     Route: 065
  2. NICARDIPINE HCL [Interacting]
     Indication: HYPERTENSION
     Dosage: 4.17 UG/KG/MIN
     Route: 042
  3. MIDAZOLAM [Interacting]
     Indication: SEDATION
     Dosage: 3 MG/HOUR
     Route: 042
  4. DILTIAZEM HCL [Suspect]
     Indication: TACHYCARDIA
  5. FENTANYL [Interacting]
     Indication: INDUCTION OF ANAESTHESIA
     Route: 065
  6. NICARDIPINE HCL [Interacting]
     Indication: TACHYCARDIA
  7. DILTIAZEM HCL [Suspect]
     Indication: HYPERTENSION
     Dosage: 4.5 UG/KG/MIN
     Route: 042
  8. SEVOFLURANE [Interacting]
     Indication: MAINTENANCE OF ANAESTHESIA
     Dosage: 2%
     Route: 065
  9. VECURONIUM BROMIDE [Interacting]
     Indication: INDUCTION OF ANAESTHESIA
     Route: 065

REACTIONS (2)
  - DRUG INTERACTION [None]
  - CARDIAC ARREST [None]
